FAERS Safety Report 15101835 (Version 1)
Quarter: 2018Q3

REPORT INFORMATION
  Report Type: Spontaneous
  Country: IT (occurrence: IT)
  Receive Date: 20180703
  Receipt Date: 20180703
  Transmission Date: 20181010
  Serious: Yes (Other)
  Sender: FDA-Public Use
  Company Number: IT-TEVA-2018-IT-917485

PATIENT
  Age: 77 Year
  Sex: Male

DRUGS (6)
  1. SAFLUTAN [Concomitant]
     Active Substance: TAFLUPROST
  2. OMNIC [Concomitant]
     Active Substance: TAMSULOSIN HYDROCHLORIDE
  3. PRADAXA 75?MG HARD CAPSULES [Concomitant]
  4. MEDROL [Concomitant]
     Active Substance: METHYLPREDNISOLONE
  5. PROPAFENONE. [Suspect]
     Active Substance: PROPAFENONE
     Indication: ATRIAL FIBRILLATION
     Dosage: 450 MILLIGRAM DAILY;
     Route: 048
     Dates: start: 20170101, end: 20170612
  6. CRESTOR [Concomitant]
     Active Substance: ROSUVASTATIN CALCIUM

REACTIONS (2)
  - Palpitations [Unknown]
  - Balance disorder [Unknown]

NARRATIVE: CASE EVENT DATE: 20170612
